FAERS Safety Report 9669104 (Version 2)
Quarter: 2013Q4

REPORT INFORMATION
  Report Type: Report from Study
  Country: FR (occurrence: FR)
  Receive Date: 20131105
  Receipt Date: 20131114
  Transmission Date: 20140711
  Serious: Yes (Death, Life-Threatening, Hospitalization, Other)
  Sender: FDA-Public Use
  Company Number: FR-ASTELLAS-2013EU009425

PATIENT
  Age: 78 Year
  Sex: Male
  Weight: 74 kg

DRUGS (4)
  1. ENZALUTAMIDE [Suspect]
     Indication: PROSTATE CANCER
     Dosage: 160 MG, UID/QD
     Route: 048
     Dates: start: 20130506, end: 2013
  2. DOLIPRANE [Concomitant]
     Indication: PAIN
     Dosage: 1 G, TID
     Route: 048
     Dates: start: 201211, end: 2013
  3. TRAMADOL [Concomitant]
     Indication: PAIN
     Dosage: 100 MG, BID
     Route: 048
     Dates: start: 201302, end: 2013
  4. DECAPEPTYL                         /00486501/ [Concomitant]
     Indication: ANTIANDROGEN THERAPY
     Dosage: 11.25 MG, OTHER
     Route: 065
     Dates: start: 200902, end: 2013

REACTIONS (8)
  - General physical health deterioration [Fatal]
  - Multi-organ failure [Fatal]
  - Anaemia [Not Recovered/Not Resolved]
  - Escherichia sepsis [Unknown]
  - Depressed level of consciousness [Unknown]
  - Urinary tract infection [Recovered/Resolved]
  - Somnolence [Recovering/Resolving]
  - Back pain [Not Recovered/Not Resolved]
